FAERS Safety Report 5206656-8 (Version None)
Quarter: 2006Q4

REPORT INFORMATION
  Report Type: 
  Country: None (occurrence: None)
  Receive Date: 20061026
  Receipt Date: 20060829
  Transmission Date: 20070319
  Serious: No
  Sender: FDA-Public Use
  Company Number: 2006087729

PATIENT
  Age: 86 Year
  Sex: Male
  Weight: 65.7716 kg

DRUGS (13)
  1. LYRICA [Suspect]
     Indication: DIABETIC NEUROPATHY
     Dosage: 150 MG (75 MG, 2 IN 1 D); ORAL
     Route: 048
     Dates: start: 20060701
  2. LYRICA [Suspect]
     Indication: NEUROPATHY PERIPHERAL
     Dosage: 150 MG (75 MG, 2 IN 1 D); ORAL
     Route: 048
     Dates: start: 20060701
  3. ASPIRIN [Concomitant]
  4. NORVASC [Concomitant]
  5. PROSCAR [Concomitant]
  6. PLAVIX [Concomitant]
  7. COREG [Concomitant]
  8. IMDUR [Concomitant]
  9. LASIX [Concomitant]
  10. LANOXIN [Concomitant]
  11. OMEPRAZOLE [Concomitant]
  12. ZETIA [Concomitant]
  13. FENTANYL [Concomitant]

REACTIONS (5)
  - DIZZINESS [None]
  - DYSKINESIA [None]
  - GAIT DISTURBANCE [None]
  - HYPERSOMNIA [None]
  - PAIN [None]
